FAERS Safety Report 15074864 (Version 1)
Quarter: 2018Q2

REPORT INFORMATION
  Report Type: Spontaneous
  Country: US (occurrence: US)
  Receive Date: 20180627
  Receipt Date: 20180627
  Transmission Date: 20180711
  Serious: Yes (Other)
  Sender: FDA-Public Use
  Company Number: US-SAOL THERAPEUTICS-2017SAO01516

PATIENT
  Age: 46 Year
  Sex: Male

DRUGS (3)
  1. BACLOFEN. [Suspect]
     Active Substance: BACLOFEN
     Indication: MUSCLE SPASTICITY
     Dosage: 99.92 ?G, \DAY
     Route: 037
     Dates: start: 20170922
  2. BACLOFEN. [Suspect]
     Active Substance: BACLOFEN
     Indication: MUSCLE SPASTICITY
     Dosage: 449.5 ?G, \DAY
     Route: 037
     Dates: start: 20170811, end: 20170922
  3. BACLOFEN. [Suspect]
     Active Substance: BACLOFEN
     Dosage: 469.5 ?G, \DAY
     Route: 037
     Dates: start: 20170922, end: 20170922

REACTIONS (2)
  - Therapy non-responder [Recovered/Resolved]
  - Device issue [Recovered/Resolved]

NARRATIVE: CASE EVENT DATE: 20170922
